FAERS Safety Report 7599781-8 (Version None)
Quarter: 2011Q2

REPORT INFORMATION
  Report Type: 
  Country: None (occurrence: None)
  Receive Date: 20110629
  Receipt Date: 20110617
  Transmission Date: 20111010
  Serious: Yes (Hospitalization)
  Sender: FDA-Public Use
  Company Number: GB-ACCORD-009504

PATIENT
  Age: 57 Year
  Sex: Male

DRUGS (11)
  1. ISOSORBIDE MONONITRATE [Concomitant]
  2. CARVEDILOL [Concomitant]
  3. RAMIPRIL [Concomitant]
  4. TRIMETHOPRIM [Concomitant]
  5. SIMVASTATIN [Suspect]
     Indication: HYPERCHOLESTEROLAEMIA
     Dosage: 40.00-MG / ORAL
     Route: 048
     Dates: start: 20060701, end: 20110522
  6. ASPIRIN [Concomitant]
  7. NITROGLYCERIN [Concomitant]
  8. AMLODIPNIE (AMLODIPINE) [Concomitant]
  9. NAFTIDROFURYL(NAFTIDROFURYL) [Concomitant]
  10. NICORANDIL (NICORANDIL) [Concomitant]
  11. RANEXA [Suspect]
     Indication: ANGINA PECTORIS
     Dosage: 500.00-MG-2.00 TIMES PER-1.0DAYS / ORAL
     Route: 048
     Dates: start: 20110506, end: 20110522

REACTIONS (3)
  - DRUG INTERACTION [None]
  - RHABDOMYOLYSIS [None]
  - PAIN [None]
